FAERS Safety Report 8270863-0 (Version None)
Quarter: 2012Q2

REPORT INFORMATION
  Report Type: 
  Country: None (occurrence: None)
  Receive Date: 20120410
  Receipt Date: 20120410
  Transmission Date: 20120825
  Serious: Yes (Hospitalization)
  Sender: FDA-Public Use
  Company Number: None

PATIENT
  Age: 84 Year
  Sex: Female
  Weight: 95 kg

DRUGS (14)
  1. LATANOPROST [Concomitant]
     Route: 047
  2. SITAGLIPTIN [Concomitant]
  3. FUROSEMIDE [Concomitant]
     Route: 048
  4. METOPROLOL TARTRATE [Concomitant]
     Route: 048
  5. MIRTAZAPINE [Concomitant]
     Route: 048
  6. MULTI-VITAMIN [Concomitant]
     Route: 048
  7. POTASSIUM CHLORIDE [Concomitant]
     Route: 048
  8. SPIRONOLACTONE [Concomitant]
     Route: 048
  9. TAMOXIFEN CITRATE [Concomitant]
     Route: 048
  10. METOLAZONE [Concomitant]
     Route: 048
  11. ASPIRIN [Concomitant]
     Route: 048
  12. WARFARIN SODIUM [Suspect]
     Indication: ATRIAL FIBRILLATION
     Dosage: 5MG
     Route: 048
  13. ALPRAZOLAM [Concomitant]
     Route: 048
  14. SIMVASTATIN [Concomitant]
     Route: 048

REACTIONS (4)
  - ANAEMIA [None]
  - GASTROINTESTINAL HAEMORRHAGE [None]
  - HAEMATOCHEZIA [None]
  - INTERNATIONAL NORMALISED RATIO INCREASED [None]
